FAERS Safety Report 20480196 (Version 5)
Quarter: 2022Q3

REPORT INFORMATION
  Report Type: Report from Study
  Country: DE (occurrence: DE)
  Receive Date: 20220216
  Receipt Date: 20220829
  Transmission Date: 20221026
  Serious: Yes (Congenital Anomaly)
  Sender: FDA-Public Use
  Company Number: DE-MYLANLABS-2022M1012381

PATIENT
  Sex: Male
  Weight: 2.97 kg

DRUGS (7)
  1. EMTRICITABINE\TENOFOVIR DISOPROXIL [Suspect]
     Active Substance: EMTRICITABINE\TENOFOVIR DISOPROXIL
     Indication: HIV infection
     Dosage: 445 MILLIGRAM, QD (200/225 MG/D)
     Route: 064
     Dates: start: 20210412
  2. EMTRICITABINE\TENOFOVIR DISOPROXIL [Suspect]
     Active Substance: EMTRICITABINE\TENOFOVIR DISOPROXIL
     Dosage: MATERNAL DOSE: 245/200 MG/DAY
     Route: 064
     Dates: start: 20210412
  3. EMTRICITABINE\TENOFOVIR DISOPROXIL [Suspect]
     Active Substance: EMTRICITABINE\TENOFOVIR DISOPROXIL
     Dosage: MATERNAL DOSE: 200/245
     Route: 064
     Dates: start: 20210412
  4. ISENTRESS [Suspect]
     Active Substance: RALTEGRAVIR POTASSIUM
     Indication: HIV infection
     Dosage: 800 MILLIGRAM, QD(2 X 400 MG)TWO TIMES A DAY
     Route: 064
     Dates: start: 20210412
  5. RALTEGRAVIR [Suspect]
     Active Substance: RALTEGRAVIR
     Indication: Product used for unknown indication
     Dosage: MATERNAL DOSE: 2X400 MG
     Route: 064
     Dates: start: 20210412
  6. RALTEGRAVIR [Suspect]
     Active Substance: RALTEGRAVIR
     Indication: HIV infection
     Dosage: 800 MILLIGRAM, QD MATERNAL DOSE: 800 MG, QD
     Route: 064
     Dates: start: 20210412
  7. RALTEGRAVIR [Suspect]
     Active Substance: RALTEGRAVIR
     Dosage: 800 MILLIGRAM, QD (2X 400 MG PER DAY)
     Route: 064
     Dates: start: 20210412

REACTIONS (3)
  - Polydactyly [Unknown]
  - Congenital hand malformation [Unknown]
  - Foetal exposure during pregnancy [Recovered/Resolved]

NARRATIVE: CASE EVENT DATE: 20210412
